FAERS Safety Report 7337546-2 (Version None)
Quarter: 2011Q1

REPORT INFORMATION
  Report Type: 
  Country: None (occurrence: None)
  Receive Date: 20110308
  Receipt Date: 20110302
  Transmission Date: 20110831
  Serious: Yes (Other)
  Sender: FDA-Public Use
  Company Number: DE-BRISTOL-MYERS SQUIBB COMPANY-15505571

PATIENT
  Age: 56 Year
  Sex: Male

DRUGS (8)
  1. VERAPAMIL HCL [Concomitant]
  2. RAMIPRIL [Concomitant]
  3. NEXIUM [Concomitant]
  4. BARACLUDE [Suspect]
     Indication: HEPATITIS B
     Dates: start: 20100401
  5. MIRTAZAPINE [Concomitant]
  6. SIMVASTATIN [Concomitant]
  7. LORAZEPAM [Concomitant]
  8. PHENPROCOUMON [Concomitant]

REACTIONS (3)
  - LIVER FUNCTION TEST ABNORMAL [None]
  - HEPATIC FIBROSIS [None]
  - HEPATITIS B DNA INCREASED [None]
